FAERS Safety Report 17159255 (Version 1)
Quarter: 2019Q4

REPORT INFORMATION
  Report Type: Spontaneous
  Country: US (occurrence: US)
  Receive Date: 20191215
  Receipt Date: 20191215
  Transmission Date: 20200122
  Serious: Yes (Life-Threatening, Hospitalization, Disabling)
  Sender: FDA-Public Use
  Company Number: None

PATIENT
  Age: 65 Year
  Sex: Male
  Weight: 83.25 kg

DRUGS (1)
  1. TRULICITY [Suspect]
     Active Substance: DULAGLUTIDE
     Indication: DIABETES MELLITUS INADEQUATE CONTROL
     Dosage: ?          QUANTITY:1 INJECTION(S);OTHER FREQUENCY:1 X WEEK;?
     Dates: start: 20191114, end: 20191114

REACTIONS (3)
  - Vomiting [None]
  - Acute kidney injury [None]
  - Pain [None]

NARRATIVE: CASE EVENT DATE: 20191116
